FAERS Safety Report 5001824-2 (Version None)
Quarter: 2006Q2

REPORT INFORMATION
  Report Type: 
  Country: None (occurrence: None)
  Receive Date: 20060512
  Receipt Date: 20060512
  Transmission Date: 20061013
  Serious: Yes (Other)
  Sender: FDA-Public Use
  Company Number: None

PATIENT
  Sex: Male
  Weight: 104.7809 kg

DRUGS (2)
  1. TIZANIDINE HCL [Suspect]
     Indication: MULTIPLE SCLEROSIS
     Dosage: 4 MG BID PO
     Route: 048
     Dates: start: 20040515, end: 20040601
  2. TIZANIDINE HCL [Suspect]
     Indication: MUSCLE SPASTICITY
     Dosage: 4 MG BID PO
     Route: 048
     Dates: start: 20040515, end: 20040601

REACTIONS (4)
  - DIARRHOEA [None]
  - MALAISE [None]
  - PHARMACEUTICAL PRODUCT COMPLAINT [None]
  - TREMOR [None]
